FAERS Safety Report 17239002 (Version 1)
Quarter: 2020Q1

REPORT INFORMATION
  Report Type: Spontaneous
  Country: US (occurrence: US)
  Receive Date: 20200105
  Receipt Date: 20200105
  Transmission Date: 20200409
  Serious: No
  Sender: FDA-Public Use
  Company Number: None

PATIENT
  Age: 25 Year
  Sex: Female
  Weight: 68.04 kg

DRUGS (1)
  1. NEXPLANON [Suspect]
     Active Substance: ETONOGESTREL

REACTIONS (8)
  - Nausea [None]
  - Bradyphrenia [None]
  - Migraine [None]
  - Respiration abnormal [None]
  - Feeding disorder [None]
  - Eye pain [None]
  - Malaise [None]
  - Abdominal discomfort [None]

NARRATIVE: CASE EVENT DATE: 20200104
